FAERS Safety Report 6335183-X (Version None)
Quarter: 2009Q3

REPORT INFORMATION
  Report Type: 
  Country: None (occurrence: None)
  Receive Date: 20090826
  Receipt Date: 20090818
  Transmission Date: 20100115
  Serious: Yes (Life-Threatening, Hospitalization, Disabling)
  Sender: FDA-Public Use
  Company Number: POMP-1000532

PATIENT
  Age: 9 Month
  Sex: Male

DRUGS (8)
  1. MYOZYME [Suspect]
     Indication: GLYCOGEN STORAGE DISEASE TYPE II
     Dosage: INTRAVENOUS
     Route: 042
     Dates: start: 20080704, end: 20090302
  2. CORDARONE [Suspect]
     Indication: DRUG USE FOR UNKNOWN INDICATION
     Dosage: 100 MG, QD,
     Dates: start: 20090401
  3. PULMICORT [Concomitant]
  4. AMIODARONE HCL [Concomitant]
  5. SOLUPRED (PREDNISOLONE SODIUM SULFOBENZOATE) [Concomitant]
  6. VENTOLIN [Concomitant]
  7. PULMICORT [Concomitant]
  8. OGASTRO (LANSOPRAZOLE) [Concomitant]

REACTIONS (8)
  - ACUTE RESPIRATORY DISTRESS SYNDROME [None]
  - ACUTE RESPIRATORY FAILURE [None]
  - ATELECTASIS [None]
  - LUNG DISORDER [None]
  - MALNUTRITION [None]
  - METAPNEUMOVIRUS INFECTION [None]
  - OBLITERATIVE BRONCHIOLITIS [None]
  - SUPRAVENTRICULAR TACHYCARDIA [None]
